FAERS Safety Report 8990652 (Version 1)
Quarter: 2012Q4

REPORT INFORMATION
  Report Type: 
  Country: US (occurrence: US)
  Receive Date: 20121228
  Receipt Date: 20121228
  Transmission Date: 20130627
  Serious: Yes (Other)
  Sender: FDA-Public Use
  Company Number: US-RANBAXY-2012US-63719

PATIENT
  Age: 57 Year
  Sex: Female

DRUGS (3)
  1. CETIRIZINE [Suspect]
     Indication: URTICARIA CHRONIC
     Dosage: 10 mg
     Route: 065
  2. FEXOFENADINE [Concomitant]
     Indication: URTICARIA CHRONIC
     Dosage: UNK
     Route: 065
  3. CORTICOSTEROIDS [Concomitant]
     Indication: URTICARIA CHRONIC
     Dosage: UNK
     Route: 065

REACTIONS (1)
  - Hepatotoxicity [Recovered/Resolved]
